FAERS Safety Report 5229079-4 (Version None)
Quarter: 2007Q1

REPORT INFORMATION
  Report Type: 
  Country: None (occurrence: None)
  Receive Date: 20061201
  Receipt Date: 20060814
  Transmission Date: 20070707
  Serious: No
  Sender: FDA-Public Use
  Company Number: US200608003080

PATIENT
  Age: 64 Year
  Sex: Female

DRUGS (2)
  1. CYMBALTA [Suspect]
     Indication: NEURALGIA
     Dosage: 30 MG, DAILY (1/D), ORAL
     Route: 048
     Dates: start: 20060811
  2. CELEBREX [Concomitant]

REACTIONS (3)
  - IMPAIRED DRIVING ABILITY [None]
  - NAUSEA [None]
  - SOMNOLENCE [None]
